FAERS Safety Report 7070295-7 (Version None)
Quarter: 2010Q4

REPORT INFORMATION
  Report Type: 
  Country: None (occurrence: None)
  Receive Date: 20101028
  Receipt Date: 20101005
  Transmission Date: 20110411
  Serious: No
  Sender: FDA-Public Use
  Company Number: US-WYE-H17953610

PATIENT
  Sex: Female

DRUGS (1)
  1. ADVIL [Suspect]
     Indication: GLOSSODYNIA
     Dosage: UNKNOWN DOSE ON AN EMPTY STOMACH
     Route: 048
     Dates: start: 20100916

REACTIONS (1)
  - ABDOMINAL PAIN UPPER [None]
